FAERS Safety Report 4664211-2 (Version None)
Quarter: 2005Q2

REPORT INFORMATION
  Report Type: 
  Country: None (occurrence: None)
  Receive Date: 20050516
  Receipt Date: 20050516
  Transmission Date: 20051028
  Serious: Yes (Life-Threatening)
  Sender: FDA-Public Use
  Company Number: None

PATIENT
  Sex: Female
  Weight: 77.1115 kg

DRUGS (3)
  1. DEPAKOTE [Suspect]
     Indication: POST-TRAUMATIC STRESS DISORDER
     Dosage: 25 MG , 2X,
     Dates: start: 20000101, end: 20030101
  2. DEPAKOTE [Suspect]
     Indication: SCHIZOAFFECTIVE DISORDER
     Dosage: 25 MG , 2X,
     Dates: start: 20000101, end: 20030101
  3. SEROQUEL [Suspect]
     Indication: ANXIETY
     Dosage: 600 MG , X1
     Dates: start: 20010101, end: 20050101

REACTIONS (3)
  - ASTHENIA [None]
  - CEREBROVASCULAR ACCIDENT [None]
  - MYOCARDIAL INFARCTION [None]
